FAERS Safety Report 23844598 (Version 1)
Quarter: 2024Q2

REPORT INFORMATION
  Report Type: Spontaneous
  Country: US (occurrence: US)
  Receive Date: 20240511
  Receipt Date: 20240511
  Transmission Date: 20240716
  Serious: No
  Sender: FDA-Public Use
  Company Number: US-002147023-NVSC2024US099451

PATIENT
  Sex: Female

DRUGS (2)
  1. TAFINLAR [Suspect]
     Active Substance: DABRAFENIB MESYLATE
     Indication: Hordeolum
     Dosage: 150 MG (TWICE A DAY)
     Route: 048
     Dates: start: 202404
  2. MEKINIST [Suspect]
     Active Substance: TRAMETINIB DIMETHYL SULFOXIDE
     Indication: Hordeolum
     Dosage: 2 MG (DAILY)
     Route: 048
     Dates: start: 202404

REACTIONS (3)
  - Pyrexia [Unknown]
  - Rash [Unknown]
  - Illness [Unknown]
